FAERS Safety Report 5483994-5 (Version None)
Quarter: 2007Q4

REPORT INFORMATION
  Report Type: 
  Country: None (occurrence: None)
  Receive Date: 20071009
  Receipt Date: 20071009
  Transmission Date: 20080405
  Serious: No
  Sender: FDA-Public Use
  Company Number: None

PATIENT
  Sex: Male
  Weight: 92.9874 kg

DRUGS (2)
  1. PILOCARPINE [Suspect]
     Indication: PUPILLARY DISORDER
     Dosage: 4 DROPS DAILY OCCLUSIVE DRESSING
     Route: 046
     Dates: start: 20041015, end: 20070703
  2. ALPHAGAN P [Suspect]
     Indication: PUPILLARY DISORDER
     Dosage: 4 DROPS DAILY OCCLUSIVE DRESSING
     Route: 046
     Dates: start: 20041015, end: 20071006

REACTIONS (20)
  - ACTIVITIES OF DAILY LIVING IMPAIRED [None]
  - ASTIGMATISM [None]
  - CATARACT [None]
  - COMA [None]
  - CRYING [None]
  - DEPRESSION [None]
  - DIPLOPIA [None]
  - DRUG INEFFECTIVE [None]
  - DRY EYE [None]
  - EYE OPERATION COMPLICATION [None]
  - GLARE [None]
  - LOSS OF EMPLOYMENT [None]
  - MENTAL DISORDER [None]
  - MYDRIASIS [None]
  - PARTNER STRESS [None]
  - PHOTOPHOBIA [None]
  - PHOTOPSIA [None]
  - SOCIAL PROBLEM [None]
  - VISUAL FIELD DEFECT [None]
  - VITREOUS FLOATERS [None]
